FAERS Safety Report 8546070-0 (Version None)
Quarter: 2012Q3

REPORT INFORMATION
  Report Type: 
  Country: None (occurrence: None)
  Receive Date: 20120727
  Receipt Date: 20120125
  Transmission Date: 20120928
  Serious: No
  Sender: FDA-Public Use
  Company Number: US-ASTRAZENECA-2011SE74072

PATIENT
  Age: 88 Year
  Sex: Female
  Weight: 44 kg

DRUGS (2)
  1. SEROQUEL [Suspect]
     Indication: SLEEP DISORDER
     Route: 048
  2. SEROQUEL [Suspect]
     Route: 048

REACTIONS (6)
  - DRUG DOSE OMISSION [None]
  - DEMENTIA ALZHEIMER'S TYPE [None]
  - INCONTINENCE [None]
  - FLUID INTAKE REDUCED [None]
  - EATING DISORDER [None]
  - MALAISE [None]
